FAERS Safety Report 8001238-7 (Version None)
Quarter: 2011Q4

REPORT INFORMATION
  Report Type: 
  Country: None (occurrence: None)
  Receive Date: 20111222
  Receipt Date: 20111209
  Transmission Date: 20120403
  Serious: Yes (Hospitalization, Other)
  Sender: FDA-Public Use
  Company Number: US-ELI_LILLY_AND_COMPANY-US201110007213

PATIENT
  Sex: Male
  Weight: 131.97 kg

DRUGS (12)
  1. ROBAXIN [Concomitant]
  2. CHOLESTYRAMINE [Concomitant]
  3. ANALGESICS [Concomitant]
  4. ALTACE [Concomitant]
  5. TEGRETOL [Concomitant]
  6. TRICOR [Concomitant]
  7. CRESTOR [Concomitant]
  8. PROZAC [Concomitant]
  9. ATENOLOL [Concomitant]
  10. CIALIS [Suspect]
     Indication: ERECTILE DYSFUNCTION
     Dosage: 10 MG, PRN
  11. TESTOSTERONE [Concomitant]
  12. AMBIEN [Concomitant]

REACTIONS (3)
  - DISTURBANCE IN ATTENTION [None]
  - MENTAL IMPAIRMENT [None]
  - HAEMORRHAGIC STROKE [None]
